FAERS Safety Report 22638184 (Version 1)
Quarter: 2023Q2

REPORT INFORMATION
  Report Type: Report from Study
  Country: US (occurrence: US)
  Receive Date: 20230626
  Receipt Date: 20230626
  Transmission Date: 20230721
  Serious: Yes (Other)
  Sender: FDA-Public Use
  Company Number: US-002147023-NVSC2023US142947

PATIENT
  Age: 13 Year
  Sex: Female
  Weight: 90.703 kg

DRUGS (8)
  1. COSENTYX [Suspect]
     Active Substance: SECUKINUMAB
     Indication: Psoriasis
     Dosage: UNK, QW (WEEKLY X 5 THEN Q MONTHLY, 2 WEEKS)
     Route: 065
     Dates: start: 202202
  2. CLOBETASOL [Suspect]
     Active Substance: CLOBETASOL
     Indication: Psoriasis
     Dosage: UNK
     Route: 061
  3. DOXYCYCLINE [Suspect]
     Active Substance: DOXYCYCLINE
     Indication: Psoriasis
     Dosage: UNK
     Route: 065
  4. MINOCYCLINE [Suspect]
     Active Substance: MINOCYCLINE HYDROCHLORIDE
     Indication: Psoriasis
     Dosage: UNK
     Route: 065
  5. TRIAMCINOLONE [Suspect]
     Active Substance: TRIAMCINOLONE
     Indication: Psoriasis
     Dosage: UNK
     Route: 065
  6. AMPICILLIN [Suspect]
     Active Substance: AMPICILLIN
     Indication: Psoriasis
     Dosage: UNK
     Route: 065
  7. TRETINOIN [Suspect]
     Active Substance: TRETINOIN
     Indication: Psoriasis
     Dosage: UNK
     Route: 065
  8. STELARA [Concomitant]
     Active Substance: USTEKINUMAB
     Indication: Psoriasis
     Dosage: UNK (ULTRAVATE)
     Route: 065

REACTIONS (11)
  - Polyglandular autoimmune syndrome type II [Unknown]
  - Skin plaque [Not Recovered/Not Resolved]
  - Acne [Recovering/Resolving]
  - Polyglandular autoimmune syndrome type III [Unknown]
  - Pain [Unknown]
  - Emotional distress [Unknown]
  - Macule [Unknown]
  - Psoriasis [Unknown]
  - Product use in unapproved indication [Unknown]
  - Treatment failure [Unknown]
  - Therapeutic product effect incomplete [Unknown]

NARRATIVE: CASE EVENT DATE: 20200716
